FAERS Safety Report 15776993 (Version 2)
Quarter: 2019Q1

REPORT INFORMATION
  Report Type: Other
  Country: DE (occurrence: DE)
  Receive Date: 20181231
  Receipt Date: 20190104
  Transmission Date: 20190417
  Serious: Yes (Hospitalization, Other)
  Sender: FDA-Public Use
  Company Number: DE-COLLEGIUM PHARMACEUTICAL, INC.-DE-2018COL014651

PATIENT
  Sex: Female
  Weight: 118 kg

DRUGS (7)
  1. METOPROLOL. [Suspect]
     Active Substance: METOPROLOL
     Indication: PRODUCT USED FOR UNKNOWN INDICATION
     Dosage: UNK
  2. ETHINYLESTRADIOL W/LEVONORGESTREL [Suspect]
     Active Substance: ETHINYL ESTRADIOL\LEVONORGESTREL
     Indication: PRODUCT USED FOR UNKNOWN INDICATION
     Dosage: UNK
  3. IBUPROFEN. [Suspect]
     Active Substance: IBUPROFEN
     Indication: PRODUCT USED FOR UNKNOWN INDICATION
     Dosage: UNK
  4. MAXIM                              /01257001/ [Suspect]
     Active Substance: DIENOGEST\ETHINYL ESTRADIOL
     Indication: CONTRACEPTION
     Dosage: UNK
     Dates: start: 201711, end: 201811
  5. TAPENTADOL [Suspect]
     Active Substance: TAPENTADOL
     Indication: PRODUCT USED FOR UNKNOWN INDICATION
     Dosage: UNK
  6. L-THYROX [Suspect]
     Active Substance: LEVOTHYROXINE SODIUM
     Indication: PRODUCT USED FOR UNKNOWN INDICATION
     Dosage: UNK
  7. METHOTREXATE (METHOTREXATE SODIUM) [Suspect]
     Active Substance: METHOTREXATE SODIUM
     Indication: PRODUCT USED FOR UNKNOWN INDICATION
     Dosage: UNK

REACTIONS (2)
  - Deep vein thrombosis [Recovered/Resolved]
  - Embolism venous [Unknown]

NARRATIVE: CASE EVENT DATE: 201808
